FAERS Safety Report 23129462 (Version 1)
Quarter: 2023Q4

REPORT INFORMATION
  Report Type: Spontaneous
  Country: US (occurrence: None)
  Receive Date: 20231031
  Receipt Date: 20231031
  Transmission Date: 20240110
  Serious: Yes (Hospitalization)
  Sender: FDA-Public Use
  Company Number: None

PATIENT
  Age: 16 Year
  Sex: Female

DRUGS (1)
  1. TADALAFIL [Suspect]
     Active Substance: TADALAFIL
     Dosage: FREQUENCY : DAILY;?
     Route: 048
     Dates: start: 202211

REACTIONS (2)
  - Dyspnoea [None]
  - Dyspnoea [None]

NARRATIVE: CASE EVENT DATE: 20231026
